FAERS Safety Report 19232933 (Version 5)
Quarter: 2021Q3

REPORT INFORMATION
  Report Type: Report from Study
  Country: None (occurrence: US)
  Receive Date: 20210507
  Receipt Date: 20210819
  Transmission Date: 20211014
  Serious: Yes (Hospitalization, Other)
  Sender: FDA-Public Use
  Company Number: US-ABBVIE-21K-163-3894463-00

PATIENT
  Age: 81 Year
  Sex: Male

DRUGS (5)
  1. IMBRUVICA [Suspect]
     Active Substance: IBRUTINIB
     Route: 048
  2. IMBRUVICA [Suspect]
     Active Substance: IBRUTINIB
     Route: 048
     Dates: start: 20201022
  3. IMBRUVICA [Suspect]
     Active Substance: IBRUTINIB
     Indication: CHRONIC LYMPHOCYTIC LEUKAEMIA (IN REMISSION)
     Route: 048
     Dates: start: 20201020
  4. IMBRUVICA [Suspect]
     Active Substance: IBRUTINIB
     Route: 048
     Dates: start: 20201028
  5. IMBRUVICA [Suspect]
     Active Substance: IBRUTINIB
     Route: 048
     Dates: start: 20201028, end: 2021

REACTIONS (14)
  - Chest injury [Unknown]
  - Procedural haemorrhage [Unknown]
  - Head injury [Unknown]
  - Atrial fibrillation [Unknown]
  - Surgery [Unknown]
  - Arthralgia [Unknown]
  - Asthenia [Unknown]
  - Blood glucose decreased [Unknown]
  - Aortic aneurysm [Unknown]
  - Fall [Unknown]
  - Dehydration [Unknown]
  - Pain [Unknown]
  - Cerebrovascular accident [Not Recovered/Not Resolved]
  - Malaise [Unknown]

NARRATIVE: CASE EVENT DATE: 20210804
